FAERS Safety Report 8053477-7 (Version None)
Quarter: 2012Q1

REPORT INFORMATION
  Report Type: 
  Country: None (occurrence: None)
  Receive Date: 20120118
  Receipt Date: 20120113
  Transmission Date: 20120608
  Serious: Yes (Other)
  Sender: FDA-Public Use
  Company Number: US-PFIZER INC-2012012703

PATIENT
  Sex: Female

DRUGS (2)
  1. NIFEDIPINE [Suspect]
     Dosage: 30 MG, UNK
  2. PROCARDIA XL [Suspect]
     Dosage: 30 MG, UNK

REACTIONS (2)
  - BLOOD PRESSURE INCREASED [None]
  - EYE HAEMORRHAGE [None]
